FAERS Safety Report 9487538 (Version 2)
Quarter: 2013Q3

REPORT INFORMATION
  Report Type: Spontaneous
  Country: US (occurrence: US)
  Receive Date: 20130725
  Receipt Date: 20130725
  Transmission Date: 20140515
  Serious: Yes (Other)
  Sender: FDA-Public Use
  Company Number: US-GLAXOSMITHKLINE-A0804383A

PATIENT
  Age: 48 Year
  Sex: Female
  Weight: 200.9 kg

DRUGS (6)
  1. AVANDIA [Suspect]
     Indication: DIABETES MELLITUS
     Dosage: 8MG TWICE PER DAY
     Route: 048
     Dates: start: 1999, end: 2004
  2. INSULIN [Concomitant]
  3. XENICAL [Concomitant]
  4. PREMARIN [Concomitant]
  5. LOTENSIN [Concomitant]
  6. AMITRIPTYLINE [Concomitant]

REACTIONS (1)
  - Cardiac failure congestive [Recovered/Resolved]
